FAERS Safety Report 8593495-3 (Version None)
Quarter: 2012Q3

REPORT INFORMATION
  Report Type: 
  Country: None (occurrence: None)
  Receive Date: 20120814
  Receipt Date: 20120802
  Transmission Date: 20120928
  Serious: No
  Sender: FDA-Public Use
  Company Number: US-ASTRAZENECA-2012SE54742

PATIENT
  Sex: Female

DRUGS (1)
  1. NEXIUM [Suspect]
     Indication: GASTROOESOPHAGEAL REFLUX DISEASE
     Dosage: 1 PILL IN THE AM AND 1 PILL IN THE PM
     Route: 048
     Dates: start: 20090101

REACTIONS (4)
  - OFF LABEL USE [None]
  - FULL BLOOD COUNT DECREASED [None]
  - VITAMIN B12 DECREASED [None]
  - BARRETT'S OESOPHAGUS [None]
